FAERS Safety Report 14372284 (Version 3)
Quarter: 2018Q1

REPORT INFORMATION
  Report Type: Spontaneous
  Country: CH (occurrence: CH)
  Receive Date: 20180110
  Receipt Date: 20180129
  Transmission Date: 20180509
  Serious: Yes (Hospitalization, Other)
  Sender: FDA-Public Use
  Company Number: CH-JNJFOC-20180110016

PATIENT
  Age: 55 Year
  Sex: Male
  Weight: 90 kg

DRUGS (6)
  1. CRESTOR [Concomitant]
     Active Substance: ROSUVASTATIN CALCIUM
     Route: 065
  2. SOTALOL. [Concomitant]
     Active Substance: SOTALOL
     Route: 065
  3. MABTHERA [Concomitant]
     Active Substance: RITUXIMAB
     Dosage: 2 X 2 /YEAR
     Route: 065
  4. XARELTO [Suspect]
     Active Substance: RIVAROXABAN
     Indication: ATRIAL FIBRILLATION
     Route: 048
     Dates: start: 201703
  5. SYMBICORT [Concomitant]
     Active Substance: BUDESONIDE\FORMOTEROL FUMARATE DIHYDRATE
     Route: 065
  6. ECOFENAC [Concomitant]
     Active Substance: DICLOFENAC SODIUM
     Dosage: 75
     Route: 065

REACTIONS (2)
  - Post procedural haematuria [Recovered/Resolved]
  - Renal stone removal [Unknown]

NARRATIVE: CASE EVENT DATE: 20170320
